FAERS Safety Report 24736180 (Version 1)
Quarter: 2024Q4

REPORT INFORMATION
  Report Type: Spontaneous
  Country: US (occurrence: US)
  Receive Date: 20241216
  Receipt Date: 20241216
  Transmission Date: 20250114
  Serious: Yes (Hospitalization, Other)
  Sender: MSN LABORATORIES PRIVATE LIMITED
  Company Number: US-MSNLABS-2024MSNLIT02700

PATIENT

DRUGS (3)
  1. DOFETILIDE [Suspect]
     Active Substance: DOFETILIDE
     Indication: Atrial fibrillation
     Route: 065
  2. DOFETILIDE [Suspect]
     Active Substance: DOFETILIDE
     Route: 065
  3. APIXABAN [Concomitant]
     Active Substance: APIXABAN
     Indication: Atrial fibrillation
     Route: 065

REACTIONS (5)
  - Overdose [Unknown]
  - Electrocardiogram QT prolonged [Unknown]
  - Anxiety [Unknown]
  - Dyspepsia [Unknown]
  - Extra dose administered [Unknown]
